FAERS Safety Report 10076207 (Version 1)
Quarter: 2014Q2

REPORT INFORMATION
  Report Type: Spontaneous
  Country: IE (occurrence: IE)
  Receive Date: 20140414
  Receipt Date: 20140414
  Transmission Date: 20141212
  Serious: Yes (Death, Hospitalization, Other)
  Sender: FDA-Public Use
  Company Number: IE-ACTAVIS-2014-06958

PATIENT
  Age: 72 Year
  Sex: Male

DRUGS (2)
  1. METHOTREXATE (UNKNOWN) [Suspect]
     Indication: RHEUMATOID ARTHRITIS
     Dosage: 12.5 MG, 1/WEEK
     Route: 048
  2. DEXAMETHASONE (UNKNOWN) [Suspect]
     Indication: SPINAL CORD COMPRESSION
     Dosage: 16 MG, UNKNOWN
     Route: 042

REACTIONS (6)
  - Necrotising fasciitis [Fatal]
  - Staphylococcal bacteraemia [Fatal]
  - Atrial fibrillation [Unknown]
  - Depressed level of consciousness [Unknown]
  - Cardiac failure [Unknown]
  - Urosepsis [Unknown]
